FAERS Safety Report 5875650-6 (Version None)
Quarter: 2008Q3

REPORT INFORMATION
  Report Type: 
  Country: None (occurrence: None)
  Receive Date: 20080905
  Receipt Date: 20080826
  Transmission Date: 20090109
  Serious: Yes (Other)
  Sender: FDA-Public Use
  Company Number: 2008AL009860

PATIENT
  Age: 84 Year
  Sex: Male

DRUGS (7)
  1. DIGOXIN [Suspect]
     Dosage: 0125MG, DAILY PO
     Route: 048
  2. DILTIAZEM [Concomitant]
  3. HYDROCHLOROTHIAZIDE [Concomitant]
  4. COZAAR [Concomitant]
  5. ASPIRIN [Concomitant]
  6. LEVOXYL [Concomitant]
  7. WARFARIN SODIUM [Concomitant]

REACTIONS (5)
  - HEART RATE IRREGULAR [None]
  - IMPAIRED DRIVING ABILITY [None]
  - NOCTURIA [None]
  - ROAD TRAFFIC ACCIDENT [None]
  - VISION BLURRED [None]
